FAERS Safety Report 10655333 (Version 1)
Quarter: 2014Q4

REPORT INFORMATION
  Report Type: Spontaneous
  Country: CA (occurrence: CA)
  Receive Date: 20141216
  Receipt Date: 20141216
  Transmission Date: 20150529
  Serious: Yes (Hospitalization, Other)
  Sender: FDA-Public Use
  Company Number: CA-GILEAD-2014-0127237

PATIENT
  Age: 66 Year
  Sex: Female

DRUGS (9)
  1. PANTOPRAZOLE [Concomitant]
     Active Substance: PANTOPRAZOLE SODIUM
  2. AMBRISENTAN [Suspect]
     Active Substance: AMBRISENTAN
     Indication: PULMONARY ARTERIAL HYPERTENSION
     Dosage: 10 MG, 1D
     Route: 065
     Dates: start: 20131219
  3. SPIROTON [Concomitant]
  4. TYLENOL ARTHRITIS PAIN [Concomitant]
     Active Substance: ACETAMINOPHEN
  5. EURO-FERROUS SULFATE [Concomitant]
  6. FUROSEMIDE. [Concomitant]
     Active Substance: FUROSEMIDE
  7. SYNTHROID [Concomitant]
     Active Substance: LEVOTHYROXINE SODIUM
  8. TOLOXIN                            /00017701/ [Concomitant]
  9. ADCIRCA [Concomitant]
     Active Substance: TADALAFIL
     Dosage: 40 MG, 1D

REACTIONS (5)
  - Dyspnoea [Not Recovered/Not Resolved]
  - Cellulitis [Not Recovered/Not Resolved]
  - Abasia [Unknown]
  - Anaemia [Not Recovered/Not Resolved]
  - Asthenia [Not Recovered/Not Resolved]

NARRATIVE: CASE EVENT DATE: 20141128
